FAERS Safety Report 10901482 (Version 3)
Quarter: 2015Q2

REPORT INFORMATION
  Report Type: Spontaneous
  Country: DE (occurrence: DE)
  Receive Date: 20150310
  Receipt Date: 20150417
  Transmission Date: 20150821
  Serious: Yes (Hospitalization, Other)
  Sender: FDA-Public Use
  Company Number: DE-PFIZER INC-2015078108

PATIENT
  Age: 12 Year
  Sex: Male
  Weight: 31 kg

DRUGS (13)
  1. GENOTROPIN [Suspect]
     Active Substance: SOMATROPIN
     Indication: GROWTH HORMONE DEFICIENCY
  2. CORTISONE [Concomitant]
     Active Substance: CORTISONE\HYDROCORTISONE
     Dosage: UNK
     Route: 048
     Dates: start: 201502
  3. CORTISONE [Concomitant]
     Active Substance: CORTISONE\HYDROCORTISONE
     Dosage: UNK
     Route: 048
     Dates: start: 201409
  4. PREDNISOLON [Concomitant]
     Active Substance: PREDNISOLONE
     Dosage: 25 MG, UNK (INTHE MORNING)
  5. ANTRA [Concomitant]
     Active Substance: OMEPRAZOLE
     Dosage: UNK, 2X/DAY
  6. METHOTREXATE [Concomitant]
     Active Substance: METHOTREXATE
     Dosage: UNK
     Route: 058
     Dates: start: 201409
  7. NYSTATIN. [Concomitant]
     Active Substance: NYSTATIN
     Dosage: UNK, 3X/DAY
  8. ENALAPRIL [Concomitant]
     Active Substance: ENALAPRIL
     Dosage: UNK
     Dates: start: 201409
  9. LASIX [Concomitant]
     Active Substance: FUROSEMIDE
  10. GENOTROPIN [Suspect]
     Active Substance: SOMATROPIN
     Indication: SMALL FOR DATES BABY
     Dosage: 1.1 MG, 1X/DAY
     Route: 058
     Dates: start: 201402
  11. PREDNISOLON [Concomitant]
     Active Substance: PREDNISOLONE
     Dosage: 5 MG, 1X/DAY
  12. METHOTREXATE [Concomitant]
     Active Substance: METHOTREXATE
     Dosage: 15 MG, WEEKLY (EVERY FRIDAY)
     Route: 058
  13. GENTAMYCIN [Concomitant]
     Active Substance: GENTAMICIN
     Dosage: UNK, 3X/DAY

REACTIONS (10)
  - Seizure [Not Recovered/Not Resolved]
  - Oral candidiasis [Unknown]
  - Brain oedema [Unknown]
  - Hyponatraemia [Not Recovered/Not Resolved]
  - Rhabdomyolysis [Unknown]
  - Cushing^s syndrome [Unknown]
  - Skin necrosis [Unknown]
  - Dermatomyositis [Not Recovered/Not Resolved]
  - Hypertension [Unknown]
  - Conjunctivitis [Unknown]

NARRATIVE: CASE EVENT DATE: 2014
